FAERS Safety Report 7112544-2 (Version None)
Quarter: 2010Q4

REPORT INFORMATION
  Report Type: 
  Country: None (occurrence: None)
  Receive Date: 20101119
  Receipt Date: 20101111
  Transmission Date: 20110411
  Serious: Yes (Hospitalization)
  Sender: FDA-Public Use
  Company Number: AU-ELI_LILLY_AND_COMPANY-AU201011003577

PATIENT
  Sex: Male

DRUGS (11)
  1. GEMCITABINE HCL [Suspect]
     Indication: PANCREATIC CARCINOMA
     Dosage: 1000 MG/M2, UNK
     Route: 042
     Dates: start: 20100513
  2. PACLITAXEL [Suspect]
     Indication: PANCREATIC CARCINOMA
     Dosage: 125 MG/M2, UNK
     Route: 042
     Dates: start: 20100513
  3. NOVOMIX                            /01475801/ [Concomitant]
     Indication: DIABETES MELLITUS
     Dosage: UNK, UNK
     Dates: start: 20100401
  4. PANTOPRAZOLE [Concomitant]
     Indication: GASTROOESOPHAGEAL REFLUX DISEASE
     Dosage: UNK, UNK
     Dates: start: 20100430
  5. MS CONTIN [Concomitant]
     Indication: PAIN
     Dates: start: 20100430
  6. AMITRIPTYLINE HCL [Concomitant]
     Indication: PAIN
     Dates: start: 20100401
  7. COLOXYL WITH SENNA [Concomitant]
     Indication: CONSTIPATION PROPHYLAXIS
     Dates: start: 20100401
  8. DEXAMETHASONE [Concomitant]
     Indication: PROPHYLAXIS
     Route: 042
     Dates: start: 20100513
  9. GRANISETRON HCL [Concomitant]
     Indication: PROPHYLAXIS
     Dosage: UNK, UNK
     Route: 048
     Dates: start: 20100513
  10. ALDACTONE [Concomitant]
     Indication: OEDEMA PERIPHERAL
     Route: 048
     Dates: start: 20100729
  11. CHOLECALCIFEROL [Concomitant]
     Indication: VITAMIN D
     Route: 048
     Dates: start: 20100808

REACTIONS (1)
  - INFECTION [None]
